FAERS Safety Report 19907517 (Version 1)
Quarter: 2021Q3

REPORT INFORMATION
  Report Type: Spontaneous
  Country: US (occurrence: US)
  Receive Date: 20210930
  Receipt Date: 20210930
  Transmission Date: 20211014
  Serious: No
  Sender: FDA-Public Use
  Company Number: US-SEATTLE GENETICS-2020SGN03953

PATIENT
  Age: 80 Year

DRUGS (2)
  1. RITUXAN [Suspect]
     Active Substance: RITUXIMAB
     Indication: T-CELL LYMPHOMA
  2. ADCETRIS [Suspect]
     Active Substance: BRENTUXIMAB VEDOTIN
     Indication: T-CELL LYMPHOMA
     Dosage: UNK UNK, Q3WEEKS
     Route: 065

REACTIONS (1)
  - Neuropathy peripheral [Unknown]
